FAERS Safety Report 13510587 (Version 1)
Quarter: 2017Q2

REPORT INFORMATION
  Report Type: Spontaneous
  Country: JP (occurrence: JP)
  Receive Date: 20170503
  Receipt Date: 20170503
  Transmission Date: 20170830
  Serious: Yes (Hospitalization, Other)
  Sender: FDA-Public Use
  Company Number: JP-009507513-1705JPN000006J

PATIENT
  Sex: Female

DRUGS (5)
  1. ISONIAZID. [Concomitant]
     Active Substance: ISONIAZID
     Dosage: UNK
     Route: 048
  2. PYRAZINAMIDE. [Concomitant]
     Active Substance: PYRAZINAMIDE
     Dosage: UNK
     Route: 048
  3. RIFAMPIN. [Concomitant]
     Active Substance: RIFAMPIN
     Dosage: UNK
     Route: 048
  4. ETHAMBUTOL AND PREPARATIONS [Concomitant]
     Dosage: UNK
     Route: 048
  5. MARVELON [Suspect]
     Active Substance: DESOGESTREL\ETHINYL ESTRADIOL
     Dosage: UNK
     Route: 048

REACTIONS (2)
  - Tuberculosis [Unknown]
  - Menstruation irregular [Unknown]
